FAERS Safety Report 7168025-3 (Version None)
Quarter: 2010Q4

REPORT INFORMATION
  Report Type: 
  Country: None (occurrence: None)
  Receive Date: 20101216
  Receipt Date: 20101130
  Transmission Date: 20110411
  Serious: No
  Sender: FDA-Public Use
  Company Number: US-B.I. PHARMACEUTICALS,INC./RIDGEFIELD-2010-BP-13529BP

PATIENT
  Age: 86 Year
  Sex: Female

DRUGS (4)
  1. PRADAXA [Suspect]
     Indication: ATRIAL FIBRILLATION
     Dosage: 300 MG
     Route: 048
     Dates: start: 20101129
  2. PAXIL [Concomitant]
     Indication: DEPRESSION
  3. METOPROLOL [Concomitant]
     Indication: HYPERTENSION
  4. DIGOXIN [Concomitant]
     Indication: ATRIAL FIBRILLATION

REACTIONS (1)
  - CHEST PAIN [None]
